FAERS Safety Report 25372245 (Version 3)
Quarter: 2025Q3

REPORT INFORMATION
  Report Type: Spontaneous
  Country: US (occurrence: US)
  Receive Date: 20250529
  Receipt Date: 20250812
  Transmission Date: 20251020
  Serious: Yes (Other)
  Sender: COOPERSURGICAL
  Company Number: US-COOPERSURGICAL, INC.-2025CPS004219

PATIENT
  Age: 42 Year
  Sex: Female
  Weight: 67.574 kg

DRUGS (2)
  1. PARAGARD T 380A [Suspect]
     Active Substance: COPPER
     Indication: Contraception
     Route: 015
     Dates: start: 20090603
  2. FEMARA [Concomitant]
     Active Substance: LETROZOLE
     Dates: start: 2017

REACTIONS (19)
  - Surgery [Recovered/Resolved]
  - Device breakage [Recovered/Resolved]
  - Foreign body in reproductive tract [Recovered/Resolved]
  - Complication of device removal [Recovered/Resolved]
  - Emotional disorder [Unknown]
  - Uterine cervix stenosis [Unknown]
  - Anxiety [Not Recovered/Not Resolved]
  - Procedural pain [Recovered/Resolved]
  - Procedural haemorrhage [Recovered/Resolved]
  - Anhedonia [Unknown]
  - Heavy menstrual bleeding [Recovered/Resolved]
  - Abdominal pain [Not Recovered/Not Resolved]
  - Device expulsion [Recovered/Resolved]
  - Back pain [Unknown]
  - Menstruation irregular [Recovered/Resolved]
  - Bacterial vaginosis [Recovered/Resolved]
  - Pain [Unknown]
  - Vaginal discharge [Unknown]
  - Dysmenorrhoea [Recovered/Resolved]

NARRATIVE: CASE EVENT DATE: 20090624
